FAERS Safety Report 5780925-5 (Version None)
Quarter: 2008Q2

REPORT INFORMATION
  Report Type: 
  Country: None (occurrence: None)
  Receive Date: 20080620
  Receipt Date: 20080609
  Transmission Date: 20081010
  Serious: Yes (Other)
  Sender: FDA-Public Use
  Company Number: CO-PFIZER INC-2008046995

PATIENT
  Sex: Female

DRUGS (6)
  1. CHANTIX [Suspect]
     Indication: SMOKING CESSATION THERAPY
     Route: 048
     Dates: start: 20080422, end: 20080519
  2. CHANTIX [Suspect]
     Route: 048
  3. VYTORIN [Concomitant]
  4. ALL OTHER THERAPEUTIC PRODUCTS [Concomitant]
  5. OMEPRAZOLE [Concomitant]
  6. OMEGA [Concomitant]

REACTIONS (5)
  - ANXIETY [None]
  - EYELID PTOSIS [None]
  - NAUSEA [None]
  - NIGHTMARE [None]
  - PARAESTHESIA [None]
